FAERS Safety Report 5235302-2 (Version None)
Quarter: 2007Q1

REPORT INFORMATION
  Report Type: 
  Country: None (occurrence: None)
  Receive Date: 20061208
  Receipt Date: 20060710
  Transmission Date: 20070707
  Serious: Yes (Other)
  Sender: FDA-Public Use
  Company Number: 2006UW14134

PATIENT
  Age: 53 Year
  Sex: Male
  Weight: 70.306 kg

DRUGS (1)
  1. CRESTOR [Suspect]
     Indication: BLOOD CHOLESTEROL INCREASED
     Dosage: 5 MG PO
     Route: 048
     Dates: start: 20051101

REACTIONS (7)
  - CHILLS [None]
  - DIZZINESS [None]
  - INFLUENZA LIKE ILLNESS [None]
  - LETHARGY [None]
  - MALAISE [None]
  - RASH [None]
  - SENSORY DISTURBANCE [None]
